FAERS Safety Report 5292217-1 (Version None)
Quarter: 2007Q2

REPORT INFORMATION
  Report Type: 
  Country: None (occurrence: None)
  Receive Date: 20070410
  Receipt Date: 20070330
  Transmission Date: 20071010
  Serious: Yes (Hospitalization)
  Sender: FDA-Public Use
  Company Number: GB-ROCHE-489837

PATIENT
  Age: 58 Year
  Sex: Female
  Weight: 60 kg

DRUGS (4)
  1. CAPECITABINE [Suspect]
     Dosage: GIVEN TWICE DAILY FOR TWO WEEKS OUT OF EACH THREE WEEK CYCLE
     Route: 048
     Dates: start: 20051020, end: 20051122
  2. BEVACIZUMAB [Suspect]
     Dosage: DOSAGE FORM REPORTED AS INFUSION.
     Route: 042
     Dates: start: 20051020
  3. OXALIPLATIN [Suspect]
     Dosage: DOSAGE FORM WAS REPORTED AS INFUSION.
     Route: 042
     Dates: start: 20051020
  4. BENDROFLUAZIDE [Concomitant]

REACTIONS (1)
  - DIARRHOEA [None]
